FAERS Safety Report 7355392-0 (Version None)
Quarter: 2011Q1

REPORT INFORMATION
  Report Type: 
  Country: None (occurrence: None)
  Receive Date: 20110316
  Receipt Date: 20110314
  Transmission Date: 20110831
  Serious: Yes (Other)
  Sender: FDA-Public Use
  Company Number: US-ROCHE-765370

PATIENT
  Sex: Female

DRUGS (1)
  1. ACCUTANE [Suspect]
     Route: 065
     Dates: start: 19960101, end: 20040101

REACTIONS (3)
  - DIARRHOEA [None]
  - IRRITABLE BOWEL SYNDROME [None]
  - ABDOMINAL PAIN UPPER [None]
